FAERS Safety Report 18285995 (Version 1)
Quarter: 2020Q3

REPORT INFORMATION
  Report Type: Spontaneous
  Country: DE (occurrence: DE)
  Receive Date: 20200919
  Receipt Date: 20200919
  Transmission Date: 20201103
  Serious: Yes (Hospitalization, Other)
  Sender: FDA-Public Use
  Company Number: DE-AMGEN-DEUSP2020147787

PATIENT
  Age: 50 Year
  Sex: Female

DRUGS (2)
  1. IMLYGIC [Suspect]
     Active Substance: TALIMOGENE LAHERPAREPVEC
     Indication: METASTATIC MALIGNANT MELANOMA
     Dosage: 4 MILLILITER, CYCLICAL (10 CYCLES)
     Route: 026
     Dates: start: 201704, end: 201801
  2. PEMBROLIZUMAB. [Concomitant]
     Active Substance: PEMBROLIZUMAB
     Indication: METASTATIC MALIGNANT MELANOMA
     Dosage: 3 MILLIGRAM/KILOGRAM, CYCLICAL (12 CYCLES)
     Dates: start: 201701, end: 201708

REACTIONS (4)
  - Erysipelas [Unknown]
  - Off label use [Unknown]
  - Bacterial sepsis [Unknown]
  - Vitiligo [Unknown]

NARRATIVE: CASE EVENT DATE: 201704
